FAERS Safety Report 24799918 (Version 3)
Quarter: 2025Q1

REPORT INFORMATION
  Report Type: Spontaneous
  Country: US (occurrence: US)
  Receive Date: 20250102
  Receipt Date: 20250305
  Transmission Date: 20250409
  Serious: Yes (Life-Threatening, Hospitalization, Other)
  Sender: PFIZER
  Company Number: US-PFIZER INC-202400333715

PATIENT
  Age: 64 Year
  Sex: Female
  Weight: 70.748 kg

DRUGS (3)
  1. PAXLOVID [Suspect]
     Active Substance: NIRMATRELVIR\RITONAVIR
     Indication: COVID-19 treatment
     Dosage: [NIRMATRELVIR 300 MG]/[RITONAVIR 100 MG], DAILY
     Route: 048
     Dates: start: 20241211, end: 20241213
  2. ADVIL [Concomitant]
     Active Substance: IBUPROFEN
     Indication: COVID-19
     Dosage: 200 MG, 2X/DAY
     Dates: start: 20241210, end: 20241213
  3. TYLENOL [Concomitant]
     Active Substance: ACETAMINOPHEN
     Indication: COVID-19
     Dosage: 500 MG, 2X/DAY
     Dates: start: 20241210, end: 20241213

REACTIONS (3)
  - Seizure [Recovered/Resolved]
  - Hyponatraemia [Recovered/Resolved]
  - Off label use [Recovered/Resolved]

NARRATIVE: CASE EVENT DATE: 20241211
